FAERS Safety Report 10591651 (Version 2)
Quarter: 2014Q4

REPORT INFORMATION
  Report Type: Spontaneous
  Country: US (occurrence: US)
  Receive Date: 20141118
  Receipt Date: 20141215
  Transmission Date: 20150529
  Serious: Yes (Hospitalization, Other)
  Sender: FDA-Public Use
  Company Number: US-GLAXOSMITHKLINE-US2014GSK022432

PATIENT
  Age: 60 Year
  Sex: Female

DRUGS (2)
  1. EPIVIR HBV [Suspect]
     Active Substance: LAMIVUDINE
     Dosage: UNK
  2. EPIVIR HBV [Suspect]
     Active Substance: LAMIVUDINE
     Indication: HEPATITIS B
     Dosage: 100 MG, UNK
     Dates: start: 200110

REACTIONS (4)
  - Malaise [Unknown]
  - Dehydration [Unknown]
  - Viral infection [Unknown]
  - Hospitalisation [Unknown]

NARRATIVE: CASE EVENT DATE: 201405
